FAERS Safety Report 19742104 (Version 2)
Quarter: 2021Q3

REPORT INFORMATION
  Report Type: Spontaneous
  Country: CA (occurrence: CA)
  Receive Date: 20210825
  Receipt Date: 20210922
  Transmission Date: 20211014
  Serious: Yes (Other)
  Sender: FDA-Public Use
  Company Number: CA-BAXTER-2021BAX025925

PATIENT
  Age: 11 Year
  Sex: Male

DRUGS (6)
  1. CEFTRIAXONE. [Concomitant]
     Active Substance: CEFTRIAXONE
     Indication: STREPTOCOCCAL INFECTION
     Route: 042
  2. CEFTRIAXONE. [Concomitant]
     Active Substance: CEFTRIAXONE
     Indication: DEVICE RELATED INFECTION
  3. LINEZOLID. [Suspect]
     Active Substance: LINEZOLID
     Indication: DEVICE RELATED INFECTION
     Dosage: 30.5 MG/KG/DAY
     Route: 042
  4. METRONIDAZOLE INJECTION, USP [Suspect]
     Active Substance: METRONIDAZOLE
     Indication: DEVICE RELATED INFECTION
     Dosage: 30.5 MG/KG/DAY
     Route: 042
  5. METRONIDAZOLE INJECTION, USP [Suspect]
     Active Substance: METRONIDAZOLE
     Indication: STREPTOCOCCAL INFECTION
  6. LINEZOLID. [Suspect]
     Active Substance: LINEZOLID
     Indication: STREPTOCOCCAL INFECTION
     Dosage: 30.5 MG/KG/DAY
     Route: 042

REACTIONS (2)
  - Treatment failure [Unknown]
  - Neuropathy peripheral [Recovered/Resolved]
